FAERS Safety Report 25763683 (Version 1)
Quarter: 2025Q3

REPORT INFORMATION
  Report Type: Spontaneous
  Country: US (occurrence: US)
  Receive Date: 20250905
  Receipt Date: 20250905
  Transmission Date: 20251021
  Serious: No
  Sender: DOMPE FARMACEUTICI
  Company Number: US-FARMAPROD-202411-3936

PATIENT
  Age: 48 Year
  Sex: Female

DRUGS (20)
  1. OXERVATE [Suspect]
     Active Substance: CENEGERMIN-BKBJ
     Indication: Neurotrophic keratopathy
     Route: 047
  2. XANAX [Concomitant]
     Active Substance: ALPRAZOLAM
  3. LATANOPROST [Concomitant]
     Active Substance: LATANOPROST
  4. DORZOLAMIDE [Concomitant]
     Active Substance: DORZOLAMIDE
  5. TIMOLOL MALEATE [Concomitant]
     Active Substance: TIMOLOL MALEATE
  6. CIMZIA [Concomitant]
     Active Substance: CERTOLIZUMAB PEGOL
  7. NEBIVOLOL [Concomitant]
     Active Substance: NEBIVOLOL
  8. PRILOSEC OTC [Concomitant]
     Active Substance: OMEPRAZOLE MAGNESIUM
  9. FLUOXETINE HYDROCHLORIDE [Concomitant]
     Active Substance: FLUOXETINE HYDROCHLORIDE
  10. LABETALOL HYDROCHLORIDE [Concomitant]
     Active Substance: LABETALOL HYDROCHLORIDE
  11. NIFEDIPINE [Concomitant]
     Active Substance: NIFEDIPINE
  12. QULIPTA [Concomitant]
     Active Substance: ATOGEPANT
  13. SEROQUEL [Concomitant]
     Active Substance: QUETIAPINE FUMARATE
  14. ATORVASTATIN CALCIUM [Concomitant]
     Active Substance: ATORVASTATIN CALCIUM
  15. EYLEA [Concomitant]
     Active Substance: AFLIBERCEPT
  16. CALCIUM [Concomitant]
     Active Substance: CALCIUM
  17. CYANOCOBALAMIN [Concomitant]
     Active Substance: CYANOCOBALAMIN
  18. VITAMIN A [Concomitant]
     Active Substance: VITAMIN A
  19. VITAMIN D3 [Concomitant]
     Active Substance: CHOLECALCIFEROL
  20. NAMENDA [Concomitant]
     Active Substance: MEMANTINE HYDROCHLORIDE

REACTIONS (2)
  - Wrong technique in product usage process [Unknown]
  - Product dose omission issue [Unknown]

NARRATIVE: CASE EVENT DATE: 20241104
